FAERS Safety Report 7605925-1 (Version None)
Quarter: 2011Q3

REPORT INFORMATION
  Report Type: 
  Country: None (occurrence: None)
  Receive Date: 20110713
  Receipt Date: 20110628
  Transmission Date: 20111222
  Serious: Yes (Disabling)
  Sender: FDA-Public Use
  Company Number: PHHY2011US37242

PATIENT
  Sex: Female
  Weight: 57.596 kg

DRUGS (5)
  1. AMLODIPINE [Concomitant]
     Indication: HYPERTENSION
     Dosage: 5 MG, QD
     Route: 048
     Dates: start: 20110218
  2. HYDROCODONE [Concomitant]
     Indication: BACK PAIN
     Dosage: 1 DF, BID,5/500
     Route: 048
     Dates: start: 20060101
  3. VALTURNA [Suspect]
     Dosage: 150 OF ALISKIREN AND 60 VALSARTAN
     Route: 048
     Dates: start: 20101101, end: 20110201
  4. VALTURNA [Suspect]
     Indication: HYPERTENSION
     Dosage: 300 MG OF ALISK AND 320 MG OF VALS, QD
     Route: 048
     Dates: start: 20101001, end: 20110218
  5. LORTAB [Concomitant]
     Indication: OSTEOARTHRITIS
     Dosage: 5 HYDROCODONE AND 500 PARACETAMOL
     Dates: start: 20090101

REACTIONS (2)
  - ANOSMIA [None]
  - AGEUSIA [None]
